FAERS Safety Report 14068165 (Version 1)
Quarter: 2017Q4

REPORT INFORMATION
  Report Type: Report from Study
  Country: None (occurrence: US)
  Receive Date: 20171010
  Receipt Date: 20171010
  Transmission Date: 20180321
  Serious: Yes (Hospitalization, Other)
  Sender: FDA-Public Use
  Company Number: US-ABBVIE-17K-163-1848365-00

PATIENT
  Age: 36 Year
  Sex: Female
  Weight: 108.96 kg

DRUGS (1)
  1. HUMIRA [Suspect]
     Active Substance: ADALIMUMAB
     Indication: HIDRADENITIS
     Route: 058
     Dates: start: 201609, end: 201611

REACTIONS (12)
  - Live birth [Unknown]
  - Hidradenitis [Not Recovered/Not Resolved]
  - Psoriasis [Recovered/Resolved]
  - Alanine aminotransferase increased [Recovered/Resolved]
  - Gestational hypertension [Recovered/Resolved]
  - Pre-eclampsia [Recovered/Resolved]
  - Abscess [Recovered/Resolved]
  - Hormone level abnormal [Not Recovered/Not Resolved]
  - Uterine infection [Recovered/Resolved]
  - Chest pain [Recovered/Resolved]
  - Bronchitis [Recovered/Resolved]
  - Exposure during pregnancy [Unknown]

NARRATIVE: CASE EVENT DATE: 2016
